FAERS Safety Report 6021065-X (Version None)
Quarter: 2008Q4

REPORT INFORMATION
  Report Type: 
  Country: None (occurrence: None)
  Receive Date: 20081229
  Receipt Date: 20081219
  Transmission Date: 20090506
  Serious: Yes (Other)
  Sender: FDA-Public Use
  Company Number: US-PFIZER INC-2008156799

PATIENT
  Sex: Male

DRUGS (2)
  1. CELEBREX [Suspect]
     Indication: PAIN
     Dosage: UNK
     Route: 048
     Dates: start: 20040101
  2. CELEBREX [Suspect]
     Indication: INFLAMMATION

REACTIONS (3)
  - ARTERIAL RUPTURE [None]
  - GASTROINTESTINAL DISORDER [None]
  - GASTROINTESTINAL PERFORATION [None]
